FAERS Safety Report 5409027-4 (Version None)
Quarter: 2007Q3

REPORT INFORMATION
  Report Type: 
  Country: None (occurrence: None)
  Receive Date: 20070808
  Receipt Date: 20070801
  Transmission Date: 20080115
  Serious: Yes (Other)
  Sender: FDA-Public Use
  Company Number: US-GENENTECH-240009

PATIENT
  Sex: Male
  Weight: 44.2 kg

DRUGS (1)
  1. SOMATROPIN [Suspect]
     Indication: GROWTH HORMONE DEFICIENCY
     Dosage: 1901 UNK, QD
     Route: 058
     Dates: start: 20030217, end: 20070303

REACTIONS (2)
  - GLIOMA [None]
  - NEUROFIBROMATOSIS [None]
